FAERS Safety Report 5934501-1 (Version None)
Quarter: 2008Q4

REPORT INFORMATION
  Report Type: 
  Country: None (occurrence: None)
  Receive Date: 20081029
  Receipt Date: 20081017
  Transmission Date: 20090506
  Serious: Yes (Other)
  Sender: FDA-Public Use
  Company Number: GB-ELI_LILLY_AND_COMPANY-GB200810004402

PATIENT
  Age: 45 Year
  Sex: Male
  Weight: 72.4 kg

DRUGS (2)
  1. OLANZAPINE [Suspect]
     Indication: SCHIZOPHRENIA
     Dosage: 12.5 MG, UNK
     Route: 048
     Dates: start: 20070801
  2. NICOTINE [Concomitant]
     Indication: SMOKING CESSATION THERAPY
     Dates: start: 20080605, end: 20080619

REACTIONS (1)
  - DEEP VEIN THROMBOSIS [None]
